FAERS Safety Report 9196957 (Version 1)
Quarter: 2013Q1

REPORT INFORMATION
  Report Type: Spontaneous
  Country: US (occurrence: None)
  Receive Date: 20120709
  Receipt Date: 20120709
  Transmission Date: 20140127
  Serious: No
  Sender: FDA-Public Use
  Company Number: 2012HGS-003607

PATIENT
  Age: 54 Year
  Sex: Female
  Weight: 95.26 kg

DRUGS (3)
  1. BENLYSTA [Suspect]
     Dosage: 1 IN 28 D. INTRAVENOUS DRIP
     Dates: start: 20120208, end: 20120307
  2. IMURAN (AZATHIOPRINE) (AZATHIOPRINE) [Concomitant]
  3. SPIRONOLACTONE (SPIRONOLACTONE) (SPIRONOLACTONE) [Concomitant]

REACTIONS (4)
  - Chest pain [None]
  - Heart rate increased [None]
  - Pruritus [None]
  - Rash [None]
